FAERS Safety Report 9009829 (Version 1)
Quarter: 2013Q1

REPORT INFORMATION
  Report Type: Spontaneous
  Country: US (occurrence: US)
  Receive Date: 20130110
  Receipt Date: 20130110
  Transmission Date: 20140127
  Serious: No
  Sender: FDA-Public Use
  Company Number: US-BAYER-2013-003338

PATIENT
  Sex: Female

DRUGS (2)
  1. YASMIN [Suspect]
     Dosage: UNK
     Route: 048
     Dates: start: 2004, end: 201201
  2. YASMIN [Suspect]
     Dosage: UNK
     Route: 048
     Dates: start: 201211

REACTIONS (12)
  - Heart rate increased [None]
  - Postural orthostatic tachycardia syndrome [Recovered/Resolved]
  - Orthostatic hypotension [Recovered/Resolved]
  - Asthenia [Recovered/Resolved]
  - Dyspnoea [Recovered/Resolved]
  - Constipation [Recovered/Resolved]
  - Tachycardia [Recovered/Resolved]
  - Malaise [Recovered/Resolved]
  - Varicose vein [None]
  - Angiopathy [None]
  - Postural orthostatic tachycardia syndrome [None]
  - Weight increased [None]
